FAERS Safety Report 5839160-4 (Version None)
Quarter: 2008Q3

REPORT INFORMATION
  Report Type: 
  Country: None (occurrence: None)
  Receive Date: 20080806
  Receipt Date: 20080729
  Transmission Date: 20090109
  Serious: Yes (Other)
  Sender: FDA-Public Use
  Company Number: 2008SP015511

PATIENT
  Sex: Male
  Weight: 85 kg

DRUGS (3)
  1. PEG-INTRON [Suspect]
     Indication: HEPATITIS C
     Dates: start: 20080211, end: 20080428
  2. REBETOL [Suspect]
     Indication: HEPATITIS C
     Dates: start: 20080211, end: 20080502
  3. TELAPREVIR (INVESTIGATIONAL DRUG) [Suspect]
     Indication: HEPATITIS C
     Dosage: 1125 MG;Q12H
     Dates: start: 20080211, end: 20080502

REACTIONS (1)
  - BONE FISSURE [None]
